FAERS Safety Report 24805513 (Version 1)
Quarter: 2025Q1

REPORT INFORMATION
  Report Type: Spontaneous
  Country: FR (occurrence: FR)
  Receive Date: 20250103
  Receipt Date: 20250103
  Transmission Date: 20250408
  Serious: Yes (Disabling)
  Sender: TEVA
  Company Number: None

PATIENT
  Age: 60 Year
  Sex: Male
  Weight: 53 kg

DRUGS (1)
  1. OCTREOTIDE [Suspect]
     Active Substance: OCTREOTIDE
     Indication: Small intestine neuroendocrine tumour
     Route: 058
     Dates: start: 202410, end: 202410

REACTIONS (1)
  - Arthralgia [Recovered/Resolved with Sequelae]

NARRATIVE: CASE EVENT DATE: 20241001
